FAERS Safety Report 10224309 (Version 2)
Quarter: 2014Q2

REPORT INFORMATION
  Report Type: Spontaneous
  Country: US (occurrence: US)
  Receive Date: 20140609
  Receipt Date: 20140612
  Transmission Date: 20141212
  Serious: No
  Sender: FDA-Public Use
  Company Number: US-PFIZER INC-2014156096

PATIENT
  Age: 34 Year
  Sex: Male
  Weight: 81.63 kg

DRUGS (3)
  1. LYRICA [Suspect]
     Indication: DIABETIC NEUROPATHY
     Dosage: UNK
  2. LYRICA [Suspect]
     Dosage: 75 MG, 2X/DAY
     Dates: end: 201404
  3. CYMBALTA [Concomitant]
     Indication: BACK PAIN
     Dosage: 60 MG, DAILY

REACTIONS (2)
  - Malaise [Unknown]
  - Nervous system disorder [Unknown]
